FAERS Safety Report 8235742-3 (Version None)
Quarter: 2012Q1

REPORT INFORMATION
  Report Type: 
  Country: None (occurrence: None)
  Receive Date: 20120326
  Receipt Date: 20120319
  Transmission Date: 20120608
  Serious: Yes (Other)
  Sender: FDA-Public Use
  Company Number: PHHY2012AR024479

PATIENT
  Sex: Female

DRUGS (1)
  1. EXELON [Suspect]
     Dosage: EXELON PATCH 5 CM, TWO PATCH DAILY
     Route: 062
     Dates: start: 20120101

REACTIONS (8)
  - ASTHMA [None]
  - MEMORY IMPAIRMENT [None]
  - DYSPNOEA [None]
  - FALL [None]
  - DISORIENTATION [None]
  - CHOKING SENSATION [None]
  - HEAD INJURY [None]
  - WRONG TECHNIQUE IN DRUG USAGE PROCESS [None]
